FAERS Safety Report 14075296 (Version 1)
Quarter: 2017Q4

REPORT INFORMATION
  Report Type: Spontaneous
  Country: US (occurrence: US)
  Receive Date: 20171010
  Receipt Date: 20171010
  Transmission Date: 20180321
  Serious: No
  Sender: FDA-Public Use
  Company Number: US-MYLANLABS-2016M1039086

PATIENT
  Age: 40 Year
  Sex: Female

DRUGS (1)
  1. FENTANYL. [Suspect]
     Active Substance: FENTANYL
     Dosage: UNK, Q72H
     Route: 062

REACTIONS (1)
  - Drug withdrawal syndrome [Not Recovered/Not Resolved]
